FAERS Safety Report 17761702 (Version 1)
Quarter: 2020Q2

REPORT INFORMATION
  Report Type: Spontaneous
  Country: FR (occurrence: FR)
  Receive Date: 20200508
  Receipt Date: 20200508
  Transmission Date: 20200714
  Serious: Yes (Other)
  Sender: FDA-Public Use
  Company Number: FR-CADILA HEALTHCARE LIMITED-FR-ZYDUS-026162

PATIENT

DRUGS (6)
  1. TACROLIMUS. [Suspect]
     Active Substance: TACROLIMUS
     Indication: IMMUNOSUPPRESSANT DRUG THERAPY
     Dosage: 3 MILLIGRAM,(INTERVAL :.5 DAYS)
     Route: 065
  2. ENTECAVIR. [Concomitant]
     Active Substance: ENTECAVIR
     Dosage: ()
     Route: 065
  3. MYCOPHENOLATE MOFETIL. [Suspect]
     Active Substance: MYCOPHENOLATE MOFETIL
     Indication: IMMUNOSUPPRESSANT DRUG THERAPY
     Dosage: (INTERVAL :.5 DAYS)
     Route: 065
  4. LEDIPASVIR [Suspect]
     Active Substance: LEDIPASVIR
     Indication: ANTIVIRAL TREATMENT
     Dosage: FOR 12 WEEKS ()
     Route: 065
  5. SOFOSBUVIR [Suspect]
     Active Substance: SOFOSBUVIR
     Indication: ANTIVIRAL TREATMENT
     Dosage: 12 WEEKS ()
     Route: 065
  6. PREDNISONE. [Suspect]
     Active Substance: PREDNISONE
     Indication: IMMUNOSUPPRESSANT DRUG THERAPY
     Dosage: 10 MILLIGRAM,(INTERVAL :1 DAYS)
     Route: 065

REACTIONS (3)
  - Hepatitis B reactivation [Unknown]
  - Nodular regenerative hyperplasia [Unknown]
  - Hepatic fibrosis [Unknown]
